FAERS Safety Report 8531873 (Version 4)
Quarter: 2015Q4

REPORT INFORMATION
  Report Type: Report from Study
  Country: US (occurrence: US)
  Receive Date: 20120426
  Receipt Date: 20151203
  Transmission Date: 20160305
  Serious: Yes (Death, Hospitalization)
  Sender: FDA-Public Use
  Company Number: US-ROCHE-1058781

PATIENT
  Age: 67 Year
  Sex: Female
  Weight: 78 kg

DRUGS (12)
  1. TRASTUZUMAB [Suspect]
     Active Substance: TRASTUZUMAB
     Dosage: OVER 30 MIN WEEKLY  X 11 DOSES
     Route: 042
  2. TRUSOPT [Concomitant]
     Active Substance: DORZOLAMIDE HYDROCHLORIDE
  3. ATIVAN [Concomitant]
     Active Substance: LORAZEPAM
  4. METOPROLOL TARTRATE. [Concomitant]
     Active Substance: METOPROLOL TARTRATE
  5. TRAZODONE [Concomitant]
     Active Substance: TRAZODONE HYDROCHLORIDE
  6. TRAVATAN Z [Concomitant]
     Active Substance: TRAVOPROST
  7. TRASTUZUMAB [Suspect]
     Active Substance: TRASTUZUMAB
     Dosage: OVER 30-90 MIN ON DAY 1 Q 3 WKS UNTIL 1 YR AFTER 1ST TRASTUZUMAB DOSE
     Route: 042
     Dates: start: 20111108
  8. PACLITAXEL. [Suspect]
     Active Substance: PACLITAXEL
     Indication: INVASIVE BREAST CARCINOMA
     Dosage: OVER 60 MIN, WEEKLY X 12 DOSES, TOTAL DOSE: 290 MG
     Route: 042
     Dates: start: 20120103
  9. TRASTUZUMAB [Suspect]
     Active Substance: TRASTUZUMAB
     Indication: INVASIVE BREAST CARCINOMA
     Dosage: LOADING DOSE: OVER 90 MIN ON DAY 1, WK 1 ONLY
     Route: 042
     Dates: start: 20120103
  10. CYCLOPHOSPHAMIDE. [Suspect]
     Active Substance: CYCLOPHOSPHAMIDE
     Indication: INVASIVE BREAST CARCINOMA
     Dosage: OVER 30 MIN ON DAY 1 X 4 CYCLES (CYCLE 1 TO 4)
     Route: 042
     Dates: start: 20111108, end: 20111220
  11. DOXORUBICIN [Suspect]
     Active Substance: DOXORUBICIN
     Indication: INVASIVE BREAST CARCINOMA
     Dosage: OVER 15 MIN ON DAY 1 X 4 CYCLES (CYCLES 1-4)
     Route: 042
     Dates: start: 20111108, end: 20111220
  12. KLOR-CON [Concomitant]
     Active Substance: POTASSIUM CHLORIDE

REACTIONS (4)
  - Left ventricular dysfunction [Unknown]
  - Cardiac failure [Fatal]
  - Splenic infarction [Not Recovered/Not Resolved]
  - Sepsis [Not Recovered/Not Resolved]

NARRATIVE: CASE EVENT DATE: 20120127
